FAERS Safety Report 19500435 (Version 1)
Quarter: 2021Q3

REPORT INFORMATION
  Report Type: Spontaneous
  Country: CA (occurrence: CA)
  Receive Date: 20210707
  Receipt Date: 20210707
  Transmission Date: 20211014
  Serious: Yes (Other)
  Sender: FDA-Public Use
  Company Number: CA-TEVA-2021-CA-1929234

PATIENT
  Age: 51 Year
  Sex: Male

DRUGS (3)
  1. PREDNISONE. [Suspect]
     Active Substance: PREDNISONE
     Dosage: 20 MILLIGRAM DAILY;
  2. PREDNISONE. [Suspect]
     Active Substance: PREDNISONE
     Dosage: 50 MILLIGRAM DAILY;
  3. MYFORTIC [Suspect]
     Active Substance: MYCOPHENOLATE SODIUM
     Dosage: 1440 MILLIGRAM DAILY;
     Dates: start: 201603

REACTIONS (16)
  - Mucosal ulceration [Unknown]
  - Raynaud^s phenomenon [Unknown]
  - Proteinuria [Unknown]
  - Condition aggravated [Unknown]
  - Anaemia [Unknown]
  - Splinter haemorrhages [Unknown]
  - Deep vein thrombosis [Unknown]
  - Tendon rupture [Unknown]
  - Pleurisy [Unknown]
  - Protein-losing gastroenteropathy [Unknown]
  - Lupus nephritis [Unknown]
  - Weight decreased [Unknown]
  - Osteopenia [Unknown]
  - Vasculitis [Unknown]
  - Arthritis [Unknown]
  - Steroid dependence [Unknown]

NARRATIVE: CASE EVENT DATE: 201601
